FAERS Safety Report 9378539 (Version 1)
Quarter: 2013Q3

REPORT INFORMATION
  Report Type: Spontaneous
  Country: US (occurrence: US)
  Receive Date: 20130702
  Receipt Date: 20130702
  Transmission Date: 20140515
  Serious: No
  Sender: FDA-Public Use
  Company Number: US-009507513-1306USA002566

PATIENT
  Age: 72 Year
  Sex: Male

DRUGS (3)
  1. FOSAMAX [Suspect]
     Indication: OSTEOPOROSIS
     Dosage: ONCE A WEEK
     Route: 048
     Dates: start: 2010, end: 2011
  2. ZOCOR [Concomitant]
  3. DILACORON [Concomitant]

REACTIONS (1)
  - Coronary artery disease [Recovering/Resolving]
